FAERS Safety Report 5862539-1 (Version None)
Quarter: 2008Q3

REPORT INFORMATION
  Report Type: 
  Country: None (occurrence: None)
  Receive Date: 20080828
  Receipt Date: 20080606
  Transmission Date: 20090109
  Serious: No
  Sender: FDA-Public Use
  Company Number: US-BAYER-200825860NA

PATIENT
  Sex: Female

DRUGS (3)
  1. MIRENA [Suspect]
     Indication: DRUG USE FOR UNKNOWN INDICATION
     Route: 015
     Dates: start: 20080401
  2. NAPROXEN [Concomitant]
     Indication: HAEMORRHAGE
  3. KARIVA [Concomitant]

REACTIONS (7)
  - ABDOMINAL PAIN [None]
  - ACNE [None]
  - DEPRESSION [None]
  - DIZZINESS [None]
  - MOOD SWINGS [None]
  - NAUSEA [None]
  - VAGINAL HAEMORRHAGE [None]
